FAERS Safety Report 14599857 (Version 1)
Quarter: 2018Q1

REPORT INFORMATION
  Report Type: Spontaneous
  Country: DZ (occurrence: DZ)
  Receive Date: 20180305
  Receipt Date: 20180305
  Transmission Date: 20180509
  Serious: Yes (Death, Other)
  Sender: FDA-Public Use
  Company Number: DZ-ASTRAZENECA-2018SE26904

PATIENT
  Age: 82 Year
  Sex: Male

DRUGS (1)
  1. PULMICORT RESPULES [Suspect]
     Active Substance: BUDESONIDE
     Indication: ASTHMA
     Dosage: 2 NEBULISATION/DAY
     Route: 055

REACTIONS (4)
  - Neoplasm malignant [Unknown]
  - Death [Fatal]
  - Drug administered to patient of inappropriate age [Fatal]
  - Off label use [Fatal]
